FAERS Safety Report 5901784-3 (Version None)
Quarter: 2008Q3

REPORT INFORMATION
  Report Type: 
  Country: None (occurrence: None)
  Receive Date: 20080929
  Receipt Date: 20080918
  Transmission Date: 20090109
  Serious: Yes (Hospitalization)
  Sender: FDA-Public Use
  Company Number: AT-JNJFOC-20080904797

PATIENT
  Sex: Female
  Weight: 93 kg

DRUGS (1)
  1. DOXORUBICIN HCL [Suspect]
     Indication: OVARIAN CANCER
     Dosage: 45.0 MG/M2, CYCLE 1
     Route: 042

REACTIONS (1)
  - PANCREATITIS [None]
